FAERS Safety Report 10203524 (Version 1)
Quarter: 2014Q2

REPORT INFORMATION
  Report Type: Spontaneous
  Country: AU (occurrence: None)
  Receive Date: 20140523
  Receipt Date: 20140523
  Transmission Date: 20141212
  Serious: Yes (Other)
  Sender: FDA-Public Use
  Company Number: 2014000157

PATIENT
  Age: 75 Year
  Sex: Male

DRUGS (5)
  1. ACEON (PERINDOPRIL ERBUMINE) TABLET, 8MG [Suspect]
     Indication: PRODUCT USED FOR UNKNOWN INDICATION
     Route: 048
     Dates: end: 20140204
  2. ACTYLSALICYLIC ACID (ACETYLSALICYLIC ACID) [Concomitant]
  3. ATORVASTATIN (ATORVASTATIN) [Concomitant]
  4. ESOMEPRAZOLE MAGNESIUM (ESOMEPRAZOLE MAGNESIUM) [Concomitant]
  5. METOPROLOL TARTRATE (METOPROLOL TARTRATE) [Concomitant]

REACTIONS (4)
  - Urticaria [None]
  - Pruritus [None]
  - Dysphonia [None]
  - Angioedema [None]
